FAERS Safety Report 5729925-1 (Version None)
Quarter: 2008Q2

REPORT INFORMATION
  Report Type: 
  Country: None (occurrence: None)
  Receive Date: 20080502
  Receipt Date: 20080423
  Transmission Date: 20081010
  Serious: Yes (Hospitalization, Other)
  Sender: FDA-Public Use
  Company Number: 027134

PATIENT
  Age: 29 Year
  Sex: Male

DRUGS (2)
  1. IBUPROFEN(IBUPROFEN) TABLET, 600MG [Suspect]
     Indication: HEADACHE
     Dosage: 600 MG/DAY,
  2. IBUPROFEN(IBUPROFEN) TABLET, 600MG [Suspect]
     Indication: PAIN
     Dosage: 600 MG/DAY,

REACTIONS (5)
  - CHOLANGITIS [None]
  - HEPATOSPLENOMEGALY [None]
  - NEUROPATHY PERIPHERAL [None]
  - VANISHING BILE DUCT SYNDROME [None]
  - XANTHOMATOSIS [None]
